FAERS Safety Report 22202347 (Version 2)
Quarter: 2023Q2

REPORT INFORMATION
  Report Type: Spontaneous
  Country: US (occurrence: US)
  Receive Date: 20230412
  Receipt Date: 20230508
  Transmission Date: 20230721
  Serious: Yes (Disabling, Other)
  Sender: FDA-Public Use
  Company Number: US-SANOFI-01567387

PATIENT
  Age: 74 Year
  Sex: Female

DRUGS (5)
  1. LANTUS SOLOSTAR [Suspect]
     Active Substance: INSULIN GLARGINE
     Indication: Diabetes mellitus
     Dosage: UNK
     Dates: start: 202206
  2. OZEMPIC [Concomitant]
     Active Substance: SEMAGLUTIDE
  3. NOVOLOG [Concomitant]
     Active Substance: INSULIN ASPART
  4. HUMALOG [Concomitant]
     Active Substance: INSULIN LISPRO
  5. LEVEMIR [Concomitant]
     Active Substance: INSULIN DETEMIR

REACTIONS (12)
  - Cardiac failure [Unknown]
  - Chronic kidney disease [Unknown]
  - Disability [Unknown]
  - Pain [Unknown]
  - Skin mass [Unknown]
  - Dermal cyst [Unknown]
  - Weight decreased [Unknown]
  - Vomiting [Unknown]
  - Nausea [Unknown]
  - Abdominal discomfort [Unknown]
  - Pancreatic disorder [Unknown]
  - Injection site pain [Unknown]
